FAERS Safety Report 7509177-2 (Version None)
Quarter: 2011Q2

REPORT INFORMATION
  Report Type: 
  Country: None (occurrence: None)
  Receive Date: 20110527
  Receipt Date: 20101021
  Transmission Date: 20111010
  Serious: No
  Sender: FDA-Public Use
  Company Number: US-MYLANLABS-2010S1019601

PATIENT
  Age: 86 Year
  Sex: Female
  Weight: 48.08 kg

DRUGS (2)
  1. AMITRIPTYLINE HCL [Suspect]
     Indication: DEPRESSION
     Route: 048
     Dates: start: 19700101, end: 20101020
  2. PROBIOTICA [Suspect]
     Indication: COELIAC DISEASE
     Route: 048
     Dates: start: 20100101

REACTIONS (2)
  - INSOMNIA [None]
  - PRURITUS GENERALISED [None]
